FAERS Safety Report 25735990 (Version 2)
Quarter: 2025Q3

REPORT INFORMATION
  Report Type: Report from Study
  Country: US (occurrence: US)
  Receive Date: 20250828
  Receipt Date: 20250902
  Transmission Date: 20251020
  Serious: Yes (Hospitalization)
  Sender: EMD SERONO INC
  Company Number: US-Merck Healthcare KGaA-2025031474

PATIENT
  Sex: Female
  Weight: 84 kg

DRUGS (1)
  1. MAVENCLAD [Suspect]
     Active Substance: CLADRIBINE
     Indication: Multiple sclerosis
     Dates: start: 20250606, end: 20250610

REACTIONS (4)
  - Dermatitis allergic [Unknown]
  - Diabetic ketoacidosis [Unknown]
  - Weight increased [Unknown]
  - Multiple sclerosis [Unknown]
